FAERS Safety Report 7555220-4 (Version None)
Quarter: 2011Q2

REPORT INFORMATION
  Report Type: 
  Country: None (occurrence: None)
  Receive Date: 20110617
  Receipt Date: 20110609
  Transmission Date: 20111010
  Serious: No
  Sender: FDA-Public Use
  Company Number: PHHY2009BR42233

PATIENT
  Sex: Female

DRUGS (5)
  1. FORMOTEROL FUMARATE [Suspect]
     Indication: ASTHMA
     Dates: start: 20090929
  2. FORADIL [Suspect]
     Indication: ASTHMA
  3. NEOX [Concomitant]
     Dates: start: 20090922
  4. LORATADINE [Concomitant]
     Dates: start: 20090922
  5. ALBUTEROL [Concomitant]

REACTIONS (5)
  - NORMAL NEWBORN [None]
  - ASTHMA [None]
  - DRUG EXPOSURE DURING PREGNANCY [None]
  - DYSPNOEA [None]
  - RHINITIS [None]
